FAERS Safety Report 5783219-7 (Version None)
Quarter: 2008Q2

REPORT INFORMATION
  Report Type: 
  Country: None (occurrence: None)
  Receive Date: 20080605
  Receipt Date: 20080313
  Transmission Date: 20081010
  Serious: No
  Sender: FDA-Public Use
  Company Number: A0715163A

PATIENT
  Age: 46 Year
  Sex: Female

DRUGS (1)
  1. ALLI [Suspect]
     Dates: start: 20080305, end: 20080311

REACTIONS (1)
  - DIARRHOEA [None]
